FAERS Safety Report 15842859 (Version 3)
Quarter: 2019Q1

REPORT INFORMATION
  Report Type: Spontaneous
  Country: ES (occurrence: ES)
  Receive Date: 20190118
  Receipt Date: 20190215
  Transmission Date: 20190417
  Serious: Yes (Other)
  Sender: FDA-Public Use
  Company Number: ES-PFIZER INC-2019022412

PATIENT
  Sex: Female

DRUGS (5)
  1. ESLICARBAZEPINE ACETATE [Concomitant]
     Active Substance: ESLICARBAZEPINE ACETATE
     Dosage: 1200 MG, UNK
  2. LEVETIRACETAM. [Suspect]
     Active Substance: LEVETIRACETAM
     Dosage: 1000 MG, 1X/DAY (500 MG, 2X/DAY)
  3. LEVETIRACETAM. [Suspect]
     Active Substance: LEVETIRACETAM
     Indication: GENERALISED TONIC-CLONIC SEIZURE
     Dosage: 1000 MG, 1X/DAY (500 MG, 2X/DAY)
  4. ESLICARBAZEPINE ACETATE [Concomitant]
     Active Substance: ESLICARBAZEPINE ACETATE
     Dosage: 800 MG, UNK
  5. LEVETIRACETAM. [Suspect]
     Active Substance: LEVETIRACETAM
     Dosage: 1500 MG, 1X/DAY (750 MG, 2X/DAY )

REACTIONS (7)
  - Drug ineffective [Unknown]
  - Irritability [Unknown]
  - Partial seizures [Recovered/Resolved]
  - Somnolence [Unknown]
  - Tension headache [Unknown]
  - Generalised tonic-clonic seizure [Recovered/Resolved]
  - Condition aggravated [Unknown]
